FAERS Safety Report 6712371-1 (Version None)
Quarter: 2010Q2

REPORT INFORMATION
  Report Type: 
  Country: None (occurrence: None)
  Receive Date: 20100505
  Receipt Date: 20100429
  Transmission Date: 20101027
  Serious: Yes (Other)
  Sender: FDA-Public Use
  Company Number: IT-MERCK-1003ITA00047

PATIENT
  Age: 23 Year
  Sex: Male

DRUGS (1)
  1. PROPECIA [Suspect]
     Indication: ALOPECIA
     Route: 048
     Dates: start: 20040630, end: 20050930

REACTIONS (4)
  - COGNITIVE DISORDER [None]
  - ERECTILE DYSFUNCTION [None]
  - LIBIDO DISORDER [None]
  - NERVOUS SYSTEM DISORDER [None]
